FAERS Safety Report 4353817-6 (Version None)
Quarter: 2004Q2

REPORT INFORMATION
  Report Type: 
  Country: None (occurrence: None)
  Receive Date: 20040430
  Receipt Date: 20040422
  Transmission Date: 20050107
  Serious: Yes (Hospitalization, Other)
  Sender: FDA-Public Use
  Company Number: 2003124730

PATIENT
  Age: 52 Year
  Sex: Female

DRUGS (9)
  1. FLUCONAZOLE [Suspect]
     Indication: SEPSIS
     Dosage: 200 MG (UNKNOWN), ORAL
     Route: 048
     Dates: start: 20031105, end: 20031115
  2. VANCOMYCIN [Suspect]
     Indication: SEPSIS
     Dates: start: 20031105, end: 20031115
  3. CIPROFLOXACIN [Suspect]
     Indication: SEPSIS
     Dosage: 800 MG (UNKNOWN), UNKNOWN
     Dates: start: 20031105, end: 20031115
  4. PIPERACILLIN [Suspect]
     Indication: SEPSIS
     Dosage: 12 GRAM (UNKNOWN), UNKNOWN
     Dates: start: 20031105, end: 20031115
  5. FUROSEMIDE [Concomitant]
  6. NOREPINEPHRINE BITARTRATE (NOREPINEPHRINE BITARTRATE) [Concomitant]
  7. DOBUTAMINE (DOBUTAMINE) [Concomitant]
  8. OMEPRAZOLE [Concomitant]
  9. RAMIPRIL [Concomitant]

REACTIONS (9)
  - ATRIAL FIBRILLATION [None]
  - BLOOD BICARBONATE INCREASED [None]
  - BLOOD PH DECREASED [None]
  - HAEMATURIA [None]
  - HYPOKALAEMIA [None]
  - METABOLIC ALKALOSIS [None]
  - PROTEINURIA [None]
  - RENAL TUBULAR DISORDER [None]
  - SHOCK [None]
